FAERS Safety Report 7819100-9 (Version None)
Quarter: 2011Q4

REPORT INFORMATION
  Report Type: 
  Country: None (occurrence: None)
  Receive Date: 20111018
  Receipt Date: 20111003
  Transmission Date: 20120403
  Serious: Yes (Other)
  Sender: FDA-Public Use
  Company Number: FR-CELGENEUS-056-50794-11100395

PATIENT
  Sex: Male

DRUGS (30)
  1. VIDAZA [Suspect]
     Dosage: 75 MILLIGRAM
     Route: 041
     Dates: start: 20091125, end: 20091130
  2. VIDAZA [Suspect]
     Dosage: 75 MILLIGRAM
     Route: 041
     Dates: start: 20100419, end: 20100423
  3. SPAGULUX [Concomitant]
     Indication: CONSTIPATION
     Route: 065
  4. TEXODIL [Concomitant]
     Indication: TRACHEITIS
     Route: 065
     Dates: start: 20100318
  5. PHLOROGLUCINOL HYDRATE [Concomitant]
     Indication: CONSTIPATION
     Route: 065
  6. VIDAZA [Suspect]
     Dosage: 75 MILLIGRAM
     Route: 041
     Dates: start: 20100322, end: 20100328
  7. SPASFON [Concomitant]
     Route: 065
     Dates: start: 20091126, end: 20091130
  8. OROPERIDYS [Concomitant]
     Indication: BRONCHITIS
     Route: 065
  9. TROPHIRES [Concomitant]
     Indication: BRONCHITIS
     Route: 065
  10. RABEPRAZOLE SODIUM [Concomitant]
     Indication: CONSTIPATION
     Dosage: 20 MILLIGRAM
     Route: 065
  11. VIDAZA [Suspect]
     Dosage: 75 MILLIGRAM
     Route: 041
     Dates: start: 20100222, end: 20100228
  12. ZOFRAN [Suspect]
     Dosage: 4 MILLIGRAM
     Route: 048
     Dates: start: 20091125, end: 20091130
  13. ACETAMINOPHEN [Concomitant]
     Indication: BRONCHITIS
     Route: 065
  14. CODEINE SUL TAB [Concomitant]
     Indication: BRONCHITIS
     Route: 065
  15. VIDAZA [Suspect]
     Dosage: 75 MILLIGRAM
     Route: 041
     Dates: start: 20100123, end: 20100128
  16. ZOFRAN [Suspect]
     Dosage: 4 MILLIGRAM
     Route: 048
     Dates: start: 20091226
  17. RED BLOOD CELLS [Concomitant]
     Dosage: 2 UNITS
     Route: 065
  18. IBUPROFEN [Concomitant]
     Indication: BRONCHITIS
     Route: 065
  19. TEXODIL [Concomitant]
     Indication: PHARYNGITIS
  20. AUGMENTIN '125' [Concomitant]
     Indication: DYSPHAGIA
     Route: 065
     Dates: start: 20091216, end: 20091221
  21. BION 3 [Concomitant]
     Route: 065
  22. PREDNISONE [Concomitant]
     Indication: BRONCHITIS
     Route: 065
  23. RABEPRAZOLE SODIUM [Concomitant]
  24. PHLOROGLUCINOL HYDRATE [Concomitant]
     Indication: COUGH
  25. VIDAZA [Suspect]
     Dosage: 75 MILLIGRAM
     Route: 041
     Dates: start: 20091226, end: 20100101
  26. MONZECLAR [Concomitant]
     Indication: BRONCHITIS
     Route: 065
  27. LEVOTHYROXINE SODIUM [Concomitant]
     Indication: THYROIDECTOMY
     Dosage: 1DF/DAY
     Route: 065
  28. MOVIPREP [Concomitant]
     Indication: CONSTIPATION
     Route: 065
     Dates: start: 20091125, end: 20091128
  29. NEXIUM [Concomitant]
     Dosage: 20 MILLIGRAM
     Route: 048
     Dates: start: 20091125, end: 20091204
  30. TUSSIPAX [Concomitant]
     Indication: BRONCHITIS
     Route: 065

REACTIONS (2)
  - CYTOLYTIC HEPATITIS [None]
  - CHOLESTASIS [None]
